FAERS Safety Report 4693531-0 (Version None)
Quarter: 2005Q2

REPORT INFORMATION
  Report Type: 
  Country: None (occurrence: None)
  Receive Date: 20050615
  Receipt Date: 20050505
  Transmission Date: 20051028
  Serious: Yes (Disabling)
  Sender: FDA-Public Use
  Company Number: 200503936

PATIENT
  Age: 46 Year
  Sex: Male
  Weight: 95.2554 kg

DRUGS (9)
  1. ALPHAGAN P [Suspect]
     Indication: INTRAOCULAR PRESSURE INCREASED
     Dosage: 1 DROP BID EYE
     Dates: start: 20050205
  2. MIRAPEX [Concomitant]
  3. AMBIEN [Concomitant]
  4. CLONAZEPAM [Concomitant]
  5. TETRACYCLINE [Concomitant]
  6. PSEU/GUA [Concomitant]
  7. AVELOX [Concomitant]
  8. PREDNISONE TAB [Concomitant]
  9. FLONASE [Concomitant]

REACTIONS (4)
  - DRUG INEFFECTIVE [None]
  - NIGHT BLINDNESS [None]
  - PHARMACEUTICAL PRODUCT COMPLAINT [None]
  - VISION BLURRED [None]
